FAERS Safety Report 6424793-7 (Version None)
Quarter: 2009Q4

REPORT INFORMATION
  Report Type: 
  Country: None (occurrence: None)
  Receive Date: 20091029
  Receipt Date: 20090715
  Transmission Date: 20100525
  Serious: Yes (Other)
  Sender: FDA-Public Use
  Company Number: 83928

PATIENT
  Sex: Female
  Weight: 172.3669 kg

DRUGS (4)
  1. CARBOPLATIN [Suspect]
     Indication: ENDOMETRIAL CANCER
     Dates: start: 20080701, end: 20081001
  2. CARBOPLATIN [Suspect]
  3. CARBOPLATIN [Suspect]
  4. CARBOPLATIN [Suspect]

REACTIONS (3)
  - DYSPNOEA [None]
  - HYPOTENSION [None]
  - PRURITUS [None]
